FAERS Safety Report 9871901 (Version 2)
Quarter: 2014Q1

REPORT INFORMATION
  Report Type: Spontaneous
  Country: US (occurrence: US)
  Receive Date: 20140205
  Receipt Date: 20140205
  Transmission Date: 20141002
  Serious: Yes (Hospitalization)
  Sender: FDA-Public Use
  Company Number: US-B.I. PHARMACEUTICALS,INC./RIDGEFIELD-2013-BI-34732BP

PATIENT
  Age: 55 Year
  Sex: Female
  Weight: 149.69 kg

DRUGS (9)
  1. PRADAXA [Suspect]
     Indication: ATRIAL FIBRILLATION
     Dosage: 300 MG
     Dates: start: 20110621, end: 20111222
  2. ASPIRIN [Concomitant]
     Dates: start: 2008
  3. POTASSIUM [Concomitant]
     Dates: start: 2008
  4. METOPROLOL [Concomitant]
     Dates: start: 2002
  5. PRAVASTATIN [Concomitant]
  6. FUROSEMIDE [Concomitant]
  7. CARTIA [Concomitant]
     Dates: start: 2010
  8. CENTRUM [Concomitant]
  9. TYLENOL [Concomitant]

REACTIONS (3)
  - Gastrointestinal haemorrhage [Unknown]
  - Pulseless electrical activity [Recovered/Resolved]
  - Respiratory failure [Unknown]
